FAERS Safety Report 6378794-8 (Version None)
Quarter: 2009Q3

REPORT INFORMATION
  Report Type: 
  Country: None (occurrence: None)
  Receive Date: 20090928
  Receipt Date: 20090918
  Transmission Date: 20100115
  Serious: Yes (Other)
  Sender: FDA-Public Use
  Company Number: AU-AVENTIS-200920740GDDC

PATIENT
  Age: 72 Year
  Sex: Female

DRUGS (6)
  1. ARAVA [Suspect]
     Indication: RHEUMATOID ARTHRITIS
     Route: 048
     Dates: start: 20080730
  2. METHOTREXATE [Concomitant]
     Dosage: DOSE: UNK
  3. PREDNISONE [Concomitant]
     Dosage: DOSE: UNK
  4. CALCIUM [Concomitant]
     Dosage: DOSE: UNK
  5. FOLIC ACID [Concomitant]
     Dosage: DOSE: UNK
  6. HORMONES AND RELATED AGENTS [Concomitant]
     Dosage: DOSE: UNK

REACTIONS (2)
  - ATRIAL FIBRILLATION [None]
  - LIVER FUNCTION TEST ABNORMAL [None]
